FAERS Safety Report 4523956-5 (Version None)
Quarter: 2004Q4

REPORT INFORMATION
  Report Type: 
  Country: None (occurrence: None)
  Receive Date: 20041209
  Receipt Date: 20041201
  Transmission Date: 20050328
  Serious: Yes (Hospitalization)
  Sender: FDA-Public Use
  Company Number: 200414262BCC

PATIENT
  Age: 57 Year
  Sex: Male
  Weight: 102.0593 kg

DRUGS (4)
  1. ALEVE [Suspect]
     Indication: PAIN
     Dosage: 440 MG, ONCE, ORAL
     Route: 048
     Dates: start: 20040827
  2. LAMICTAL [Concomitant]
  3. ATIVAN [Concomitant]
  4. NORVASC [Concomitant]

REACTIONS (3)
  - CHEST PAIN [None]
  - DISORIENTATION [None]
  - HYPERHIDROSIS [None]
